FAERS Safety Report 4991728-3 (Version None)
Quarter: 2006Q2

REPORT INFORMATION
  Report Type: 
  Country: None (occurrence: None)
  Receive Date: 20060504
  Receipt Date: 20060424
  Transmission Date: 20061013
  Serious: Yes (Death, Hospitalization)
  Sender: FDA-Public Use
  Company Number: IT-GLAXOSMITHKLINE-B0422373A

PATIENT
  Age: 56 Year
  Sex: Male

DRUGS (4)
  1. LAMIVUDINE [Suspect]
     Indication: PROPHYLAXIS
     Dosage: 100MG PER DAY
     Route: 065
  2. DOXORUBICIN [Concomitant]
     Indication: MULTIPLE MYELOMA
     Route: 065
  3. VINCRISTINE [Concomitant]
     Indication: MULTIPLE MYELOMA
     Route: 065
  4. DEXAMETHASONE [Concomitant]
     Indication: MULTIPLE MYELOMA
     Route: 065

REACTIONS (7)
  - ABDOMINAL PAIN [None]
  - HEPATIC FAILURE [None]
  - HEPATITIS B [None]
  - INTERSTITIAL LUNG DISEASE [None]
  - JAUNDICE [None]
  - RENAL FAILURE [None]
  - SEPSIS [None]
